FAERS Safety Report 5101479-2 (Version None)
Quarter: 2006Q3

REPORT INFORMATION
  Report Type: 
  Country: None (occurrence: None)
  Receive Date: 20060911
  Receipt Date: 20060829
  Transmission Date: 20061208
  Serious: Yes (Other)
  Sender: FDA-Public Use
  Company Number: US-NOVOPROD-256486

PATIENT
  Age: 62 Year
  Sex: Female

DRUGS (5)
  1. ACTIVELLA [Suspect]
     Indication: HORMONE THERAPY
     Dates: start: 20000901, end: 20040601
  2. PREMPRO [Suspect]
     Indication: HORMONE THERAPY
     Dates: start: 20001001, end: 20030501
  3. PREMARIN                           /00073001/ [Suspect]
     Indication: HORMONE THERAPY
     Dates: start: 19980901, end: 19991001
  4. PROVERA [Suspect]
     Indication: HORMONE THERAPY
     Dates: start: 19980901, end: 19991001
  5. CYCRIN [Suspect]
     Indication: HORMONE THERAPY
     Dates: start: 19980901, end: 19981001

REACTIONS (1)
  - PAPILLARY SEROUS ENDOMETRIAL CARCINOMA [None]
